FAERS Safety Report 13045861 (Version 1)
Quarter: 2016Q4

REPORT INFORMATION
  Report Type: Report from Study
  Country: US (occurrence: US)
  Receive Date: 20161220
  Receipt Date: 20161220
  Transmission Date: 20170207
  Serious: No
  Sender: FDA-Public Use
  Company Number: US-BIOVITRUM-2015US0632

PATIENT
  Age: 14 Year
  Sex: Female
  Weight: 67.19 kg

DRUGS (1)
  1. KINERET [Suspect]
     Active Substance: ANAKINRA
     Indication: RHEUMATOID ARTHRITIS
     Route: 058
     Dates: start: 20151015, end: 20151017

REACTIONS (4)
  - Feeling hot [Recovering/Resolving]
  - Erythema [Recovering/Resolving]
  - Rash [Recovering/Resolving]
  - Pruritus generalised [Recovering/Resolving]

NARRATIVE: CASE EVENT DATE: 20151015
